FAERS Safety Report 8062866-6 (Version None)
Quarter: 2012Q1

REPORT INFORMATION
  Report Type: 
  Country: None (occurrence: None)
  Receive Date: 20120111
  Receipt Date: 20110705
  Transmission Date: 20120608
  Serious: Yes (Hospitalization, Other)
  Sender: FDA-Public Use
  Company Number: 2011028645

PATIENT
  Sex: Male
  Weight: 58.9676 kg

DRUGS (16)
  1. GABAPENTIN [Concomitant]
  2. SUMATRIPTAN (SUMATRIPTAN) [Concomitant]
  3. PRIVIGEN [Suspect]
     Indication: MYASTHENIA GRAVIS
     Dates: start: 20110501
  4. PRIVIGEN [Suspect]
     Indication: MYASTHENIA GRAVIS
     Dates: start: 20110615, end: 20110617
  5. TOPIRAMATE [Concomitant]
  6. MESTINON [Concomitant]
  7. METHOTREXATE [Concomitant]
  8. MIRTAZAPINE [Concomitant]
  9. AMITRIPTYLINE HCL [Concomitant]
  10. MAXALT [Concomitant]
  11. MELOXICAM [Concomitant]
  12. PREDNISONE TAB [Concomitant]
  13. PYRIDOSTIGMINE (PYRIDOSTIGMINE) [Concomitant]
  14. ATENOLOL [Concomitant]
  15. DIVALPROEX (VALPROATE SEMISODIUM) [Concomitant]
  16. CYCLOBENZAPRINE [Concomitant]

REACTIONS (6)
  - CHROMATURIA [None]
  - TREMOR [None]
  - CONVULSION [None]
  - MYALGIA [None]
  - ASTHENIA [None]
  - PAIN [None]
